FAERS Safety Report 10455193 (Version 1)
Quarter: 2014Q3

REPORT INFORMATION
  Report Type: Spontaneous
  Country: GB (occurrence: GB)
  Receive Date: 20140916
  Receipt Date: 20140916
  Transmission Date: 20150326
  Serious: Yes (Other)
  Sender: FDA-Public Use
  Company Number: GB-AUROBINDO-AUR-APL-2014-09650

PATIENT
  Age: 53 Year
  Sex: Male

DRUGS (1)
  1. ALFUZOSIN 2.5MG [Suspect]
     Active Substance: ALFUZOSIN
     Indication: BENIGN PROSTATIC HYPERPLASIA
     Dosage: 2.5 MG, TWO TIMES A DAY
     Route: 065
     Dates: start: 20140731, end: 20140825

REACTIONS (5)
  - Balance disorder [Not Recovered/Not Resolved]
  - Meniere^s disease [None]
  - Condition aggravated [Not Recovered/Not Resolved]
  - Conductive deafness [None]
  - Hyperacusis [Not Recovered/Not Resolved]

NARRATIVE: CASE EVENT DATE: 20140802
